FAERS Safety Report 23864053 (Version 2)
Quarter: 2024Q2

REPORT INFORMATION
  Report Type: Report from Study
  Country: CA (occurrence: CA)
  Receive Date: 20240516
  Receipt Date: 20240520
  Transmission Date: 20240716
  Serious: Yes (Other)
  Sender: FDA-Public Use
  Company Number: CA-JNJFOC-20240538065

PATIENT
  Age: 10 Year
  Sex: Female
  Weight: 46 kg

DRUGS (2)
  1. REMICADE [Suspect]
     Active Substance: INFLIXIMAB
     Indication: Crohn^s disease
     Route: 041
     Dates: start: 20190710
  2. REMICADE [Suspect]
     Active Substance: INFLIXIMAB
     Dosage: ROUNDED TO THE NEAREST HUNDRED
     Route: 041

REACTIONS (1)
  - Crohn^s disease [Unknown]
